FAERS Safety Report 5653817-X (Version None)
Quarter: 2008Q1

REPORT INFORMATION
  Report Type: 
  Country: None (occurrence: None)
  Receive Date: 20080206
  Receipt Date: 20070103
  Transmission Date: 20080703
  Serious: Yes (Hospitalization, Other)
  Sender: FDA-Public Use
  Company Number: US200612000609

PATIENT
  Age: 68 Year
  Sex: Female
  Weight: 61.7 kg

DRUGS (4)
  1. EVISTA [Suspect]
     Indication: OSTEOPOROSIS
     Dosage: 60 MG, DAILY (1/D), ORAL
     Route: 048
     Dates: start: 20060101, end: 20061114
  2. VERAPAMIL [Concomitant]
  3. LIPITOR [Concomitant]
  4. CALCUIM WITH VITAMIN D (CALCIUM PHOSPHATE, CALCIUM SODIUM LACTATE, ERG [Concomitant]

REACTIONS (1)
  - DEEP VEIN THROMBOSIS [None]
